FAERS Safety Report 26124360 (Version 1)
Quarter: 2025Q4

REPORT INFORMATION
  Report Type: Spontaneous
  Country: US (occurrence: US)
  Receive Date: 20251205
  Receipt Date: 20251205
  Transmission Date: 20260118
  Serious: Yes (Life-Threatening, Hospitalization, Other)
  Sender: PROCTER AND GAMBLE
  Company Number: US-PROCTER+GAMBLE-PH25020805

PATIENT
  Age: 76 Year
  Sex: Female

DRUGS (2)
  1. BISMUTH SUBSALICYLATE [Interacting]
     Active Substance: BISMUTH SUBSALICYLATE
     Dosage: AROUND 2 LITERS OF BISMUTH SUBSALICYLATE TOTAL IN THE LAST TWO WEEKS
  2. METFORMIN [Interacting]
     Active Substance: METFORMIN HYDROCHLORIDE
     Indication: Diabetes mellitus
     Dosage: 850 MILLIGRAM, 2 /DAY

REACTIONS (26)
  - Blood glucose decreased [Recovered/Resolved]
  - Acute kidney injury [Recovering/Resolving]
  - Mental status changes [Recovering/Resolving]
  - Dyspnoea [Recovering/Resolving]
  - Lactic acidosis [Recovering/Resolving]
  - Systemic inflammatory response syndrome [Recovering/Resolving]
  - Abdominal pain [Recovering/Resolving]
  - Decreased appetite [Recovering/Resolving]
  - Asthenia [Recovering/Resolving]
  - Diarrhoea [Recovering/Resolving]
  - Hypothermia [Recovering/Resolving]
  - Tachycardia [Recovering/Resolving]
  - Leukocytosis [Recovered/Resolved]
  - Blood pressure diastolic decreased [Recovering/Resolving]
  - Blood lactic acid increased [Recovered/Resolved]
  - Respiratory rate increased [Recovering/Resolving]
  - Blood creatinine increased [Recovered/Resolved]
  - Blood urea increased [Recovered/Resolved]
  - Blood bicarbonate decreased [Recovered/Resolved]
  - Metabolic acidosis [Recovering/Resolving]
  - PO2 increased [Recovered/Resolved]
  - Blood pH decreased [Recovered/Resolved]
  - Amylase increased [Recovered/Resolved]
  - Lipase increased [Recovered/Resolved]
  - Drug interaction [Unknown]
  - Medication error [Unknown]
